FAERS Safety Report 11077384 (Version 2)
Quarter: 2015Q2

REPORT INFORMATION
  Report Type: Spontaneous
  Country: US (occurrence: US)
  Receive Date: 20150430
  Receipt Date: 20150526
  Transmission Date: 20150821
  Serious: No
  Sender: FDA-Public Use
  Company Number: US-JNJFOC-20130700710

PATIENT
  Age: 90 Year
  Sex: Male

DRUGS (11)
  1. GALANTAMINE ER [Suspect]
     Active Substance: GALANTAMINE
     Indication: VASCULAR DEMENTIA
     Route: 048
     Dates: end: 2013
  2. GALANTAMINE ER [Suspect]
     Active Substance: GALANTAMINE
     Indication: VASCULAR DEMENTIA
     Route: 048
     Dates: start: 2013, end: 2013
  3. ATENOLOL. [Concomitant]
     Active Substance: ATENOLOL
     Indication: HYPERTENSION
     Route: 048
  4. GALANTAMINE ER [Suspect]
     Active Substance: GALANTAMINE
     Indication: VASCULAR DEMENTIA
     Route: 048
     Dates: start: 2013
  5. GALANTAMINE ER [Suspect]
     Active Substance: GALANTAMINE
     Indication: VASCULAR DEMENTIA
     Route: 048
  6. GLIMEPIRIDE. [Concomitant]
     Active Substance: GLIMEPIRIDE
     Indication: DIABETES MELLITUS
     Route: 048
     Dates: start: 2012
  7. GALANTAMINE ER [Suspect]
     Active Substance: GALANTAMINE
     Indication: VASCULAR DEMENTIA
     Route: 048
     Dates: start: 201201
  8. ASPIRIN. [Concomitant]
     Active Substance: ASPIRIN
     Indication: ANTICOAGULANT THERAPY
     Route: 048
  9. ALLOPURINOL. [Concomitant]
     Active Substance: ALLOPURINOL
     Indication: GOUT
     Route: 048
     Dates: start: 2008
  10. GALANTAMINE ER [Suspect]
     Active Substance: GALANTAMINE
     Indication: VASCULAR DEMENTIA
     Route: 048
     Dates: start: 2012
  11. AMLODIPINE BESYLATE. [Concomitant]
     Active Substance: AMLODIPINE BESYLATE
     Indication: HYPERTENSION
     Route: 048

REACTIONS (9)
  - Social problem [Not Recovered/Not Resolved]
  - Somnolence [Not Recovered/Not Resolved]
  - Drug ineffective [Not Recovered/Not Resolved]
  - Sleep disorder [Not Recovered/Not Resolved]
  - Dyspnoea [Not Recovered/Not Resolved]
  - Dyspnoea exertional [Not Recovered/Not Resolved]
  - Movement disorder [Not Recovered/Not Resolved]
  - Decreased activity [Not Recovered/Not Resolved]
  - Heart rate decreased [Not Recovered/Not Resolved]

NARRATIVE: CASE EVENT DATE: 2012
